FAERS Safety Report 12750933 (Version 1)
Quarter: 2016Q3

REPORT INFORMATION
  Report Type: Spontaneous
  Country: TR (occurrence: TR)
  Receive Date: 20160916
  Receipt Date: 20160916
  Transmission Date: 20161109
  Serious: Yes (Hospitalization)
  Sender: FDA-Public Use
  Company Number: TR-SA-2016SA169444

PATIENT
  Sex: Male

DRUGS (1)
  1. BCG FOR IMMUNOTHERAPY [Suspect]
     Active Substance: BACILLUS CALMETTE-GUERIN ANTIGEN, UNSPECIFIED SUBSTRAIN
     Indication: BLADDER CANCER
     Route: 042

REACTIONS (14)
  - Bone marrow failure [Unknown]
  - Respiratory distress [Unknown]
  - Jaundice [Recovered/Resolved]
  - Disseminated tuberculosis [Unknown]
  - Incorrect route of drug administration [Unknown]
  - Pyrexia [Recovered/Resolved]
  - General physical health deterioration [Recovering/Resolving]
  - Cardiac arrest [Unknown]
  - Tuberculosis [Unknown]
  - Thrombocytopenia [Unknown]
  - Leukopenia [Unknown]
  - Disseminated intravascular coagulation [Unknown]
  - Oedema peripheral [Recovering/Resolving]
  - Ascites [Recovering/Resolving]
